FAERS Safety Report 6801159 (Version 2)
Quarter: 2020Q3

REPORT INFORMATION
  Report Type: Report from Study
  Country: US (occurrence: US)
  Receive Date: 20081031
  Receipt Date: 20081208
  Transmission Date: 20201104
  Serious: Yes (Death, Other)
  Sender: FDA-Public Use
  Company Number: US-ROCHE-593752

PATIENT
  Age: 82 Year
  Sex: Female

DRUGS (2)
  1. MULTIPLE OTHER MEDICATIONS [Concomitant]
  2. IBANDRONIC ACID. [Suspect]
     Active Substance: IBANDRONIC ACID
     Indication: PRODUCT USED FOR UNKNOWN INDICATION
     Route: 065

REACTIONS (3)
  - Pulmonary fibrosis [Fatal]
  - Cerebrovascular accident [Unknown]
  - Lung neoplasm malignant [Fatal]
